FAERS Safety Report 5206777-X (Version None)
Quarter: 2006Q4

REPORT INFORMATION
  Report Type: 
  Country: None (occurrence: None)
  Receive Date: 20061031
  Receipt Date: 20060125
  Transmission Date: 20070319
  Serious: Yes (Other)
  Sender: FDA-Public Use
  Company Number: HQWYE580831JAN06

PATIENT
  Age: 74 Year
  Sex: Male
  Weight: 85.81 kg

DRUGS (11)
  1. RAPAMUNE [Suspect]
     Indication: HEART TRANSPLANT
     Dosage: SEE IMAGE, ORAL
     Route: 048
     Dates: start: 20051001, end: 20051111
  2. RAPAMUNE [Suspect]
     Indication: HEART TRANSPLANT
     Dosage: SEE IMAGE, ORAL
     Route: 048
     Dates: start: 20051112, end: 20060101
  3. CYCLOSPORINE [Concomitant]
  4. CELLCEPT [Concomitant]
  5. MULTIVITAMINS (ASCORBIC ACID/ERGOCALCIFEROL/FOLIC ACID/NICOTINAMIDE/PA [Concomitant]
  6. MAG-OX (MAGNESIUM OXIDE) [Concomitant]
  7. OS-CAL + D (CALCIUM CARBONATE/COLECALCIFEROL) [Concomitant]
  8. CARDIZEM CD [Concomitant]
  9. MEVACOR [Concomitant]
  10. VIAGRA [Concomitant]
  11. ASPIRIN [Concomitant]

REACTIONS (4)
  - ARTHRALGIA [None]
  - DYSGEUSIA [None]
  - GINGIVAL SWELLING [None]
  - OEDEMA PERIPHERAL [None]
